FAERS Safety Report 8834889 (Version 1)
Quarter: 2012Q4

REPORT INFORMATION
  Report Type: 
  Country: US (occurrence: US)
  Receive Date: 20121011
  Receipt Date: 20121011
  Transmission Date: 20130627
  Serious: No
  Sender: FDA-Public Use
  Company Number: US-BIOGENIDEC-2012BI041991

PATIENT
  Age: 51 Year
  Sex: Female

DRUGS (1)
  1. TYSABRI [Suspect]
     Indication: MULTIPLE SCLEROSIS
     Route: 042
     Dates: start: 20070102

REACTIONS (10)
  - Nasal obstruction [Recovered/Resolved]
  - Nasal septum deviation [Recovered/Resolved]
  - Diarrhoea [Not Recovered/Not Resolved]
  - Clostridium difficile infection [Not Recovered/Not Resolved]
  - Allergic sinusitis [Unknown]
  - White blood cell count increased [Unknown]
  - Red blood cell count increased [Unknown]
  - Vitamin D decreased [Unknown]
  - Sinusitis [Unknown]
  - Nausea [Not Recovered/Not Resolved]
